FAERS Safety Report 15525777 (Version 1)
Quarter: 2018Q4

REPORT INFORMATION
  Report Type: Spontaneous
  Country: GB (occurrence: GB)
  Receive Date: 20181019
  Receipt Date: 20181019
  Transmission Date: 20190205
  Serious: Yes (Other)
  Sender: FDA-Public Use
  Company Number: GB-BAUSCH-BL-2018-028393

PATIENT
  Age: 54 Year

DRUGS (6)
  1. PREDNISOLONE. [Suspect]
     Active Substance: PREDNISOLONE
     Indication: PRODUCT USED FOR UNKNOWN INDICATION
     Route: 065
  2. PREDNISOLONE. [Suspect]
     Active Substance: PREDNISOLONE
     Dosage: 10 MG, QOD
     Route: 065
  3. MMF [Suspect]
     Active Substance: MYCOPHENOLATE MOFETIL
     Indication: PRODUCT USED FOR UNKNOWN INDICATION
     Route: 065
  4. TAMOXIFEN [Concomitant]
     Active Substance: TAMOXIFEN
     Indication: BREAST CONSERVING SURGERY
     Route: 065
     Dates: start: 2012
  5. PREDNISOLONE. [Suspect]
     Active Substance: PREDNISOLONE
     Route: 065
  6. RITUXIMAB. [Suspect]
     Active Substance: RITUXIMAB
     Indication: IMMUNE THROMBOCYTOPENIC PURPURA
     Route: 065
     Dates: end: 201511

REACTIONS (13)
  - Blood blister [Recovering/Resolving]
  - Platelet count decreased [Recovering/Resolving]
  - Drug ineffective [Unknown]
  - Haemorrhage [Recovering/Resolving]
  - Alanine aminotransferase increased [Unknown]
  - Contusion [Recovering/Resolving]
  - Product use in unapproved indication [Unknown]
  - Platelet count increased [Unknown]
  - Nausea [Unknown]
  - Angina bullosa haemorrhagica [Recovering/Resolving]
  - Petechiae [Unknown]
  - Headache [Unknown]
  - Diarrhoea [Unknown]
